FAERS Safety Report 4876110-1 (Version None)
Quarter: 2006Q1

REPORT INFORMATION
  Report Type: 
  Country: None (occurrence: None)
  Receive Date: 20060106
  Receipt Date: 20060106
  Transmission Date: 20060701
  Serious: Yes (Hospitalization)
  Sender: FDA-Public Use
  Company Number: None

PATIENT
  Age: 49 Year
  Sex: Female
  Weight: 63.5036 kg

DRUGS (4)
  1. CETUXIMAB - WEEKLY WITH RADIATION [Suspect]
     Indication: OESOPHAGEAL CARCINOMA
     Dosage: 250MG/M2 WEEKLY
  2. TAXOL [Suspect]
     Indication: OESOPHAGEAL CARCINOMA
     Dosage: 50 MG/M2 WEEKLY
  3. RADIATION [Concomitant]
     Indication: OESOPHAGEAL CARCINOMA
     Dosage: 412 MG IV ,  82 MG IV
     Route: 042
  4. CARBOPLATIN [Suspect]
     Indication: OESOPHAGEAL CARCINOMA
     Dosage: AUC=2/232MG IV  QWK
     Route: 042

REACTIONS (5)
  - DRUG INEFFECTIVE [None]
  - DYSPHAGIA [None]
  - NAUSEA [None]
  - THERAPY NON-RESPONDER [None]
  - WEIGHT DECREASED [None]
